FAERS Safety Report 8518422-6 (Version None)
Quarter: 2012Q3

REPORT INFORMATION
  Report Type: 
  Country: None (occurrence: None)
  Receive Date: 20120718
  Receipt Date: 20120410
  Transmission Date: 20120928
  Serious: No
  Sender: FDA-Public Use
  Company Number: US-BRISTOL-MYERS SQUIBB COMPANY-16405599

PATIENT
  Sex: Male

DRUGS (3)
  1. COUMADIN [Suspect]
  2. GLUCOPHAGE [Suspect]
     Route: 048
  3. GLUCOTROL XL [Suspect]
     Dosage: 11363665

REACTIONS (5)
  - WEIGHT INCREASED [None]
  - BLISTER [None]
  - HAEMORRHAGE [None]
  - ARTHRALGIA [None]
  - SKIN ULCER [None]
